FAERS Safety Report 18438020 (Version 2)
Quarter: 2021Q1

REPORT INFORMATION
  Report Type: Spontaneous
  Country: GB (occurrence: GB)
  Receive Date: 20201029
  Receipt Date: 20210331
  Transmission Date: 20210419
  Serious: Yes (Other)
  Sender: FDA-Public Use
  Company Number: GB-ROCHE-2703592

PATIENT
  Sex: Female

DRUGS (8)
  1. PULMOZYME [Suspect]
     Active Substance: DORNASE ALFA
     Indication: PRODUCT USED FOR UNKNOWN INDICATION
     Dosage: COUPLE OF TIMES A DAY OR COUPLE OF TIMES A WEEK
     Route: 065
  2. SYMKEVI [Suspect]
     Active Substance: IVACAFTOR\TEZACAFTOR
     Indication: CYSTIC FIBROSIS
     Dosage: 1 DOSAGE FORM, QD (ONE TABLET IN THE MORNING)
     Route: 048
  3. ATROPINE [ATROPINE SULFATE] [Concomitant]
     Dosage: INHALER
  4. KALYDECO [Suspect]
     Active Substance: IVACAFTOR
     Indication: CYSTIC FIBROSIS
     Dosage: 150 MG, QD (ONE TABLET IN THE EVENING (APPROXIMATELY 12 HOURS AFTER THEIR MORNING DOSE))
     Route: 048
  5. COLOBREATHE [Concomitant]
     Active Substance: COLISTIMETHATE SODIUM
  6. FOSTAIR [Concomitant]
     Active Substance: BECLOMETHASONE\FORMOTEROL
  7. HYPERTONIC SALINE SOLUTION [Concomitant]
     Active Substance: SODIUM CHLORIDE
  8. VENTOLIN [Concomitant]
     Active Substance: ALBUTEROL SULFATE
     Dosage: INHALER

REACTIONS (1)
  - Pulmonary haemorrhage [Unknown]
